FAERS Safety Report 6585922-8 (Version None)
Quarter: 2010Q1

REPORT INFORMATION
  Report Type: 
  Country: None (occurrence: None)
  Receive Date: 20100217
  Receipt Date: 20100204
  Transmission Date: 20100710
  Serious: Yes (Hospitalization, Other)
  Sender: FDA-Public Use
  Company Number: US-PFIZER INC-2009262995

PATIENT
  Age: 74 Year
  Sex: Female
  Weight: 64.9 kg

DRUGS (10)
  1. SUTENT [Suspect]
     Indication: RENAL CANCER
     Dosage: 50 MG, UNK
     Dates: start: 20090801
  2. SYNTHROID [Concomitant]
  3. XALATAN [Concomitant]
  4. VYTORIN [Concomitant]
  5. ALPRAZOLAM [Concomitant]
  6. TRAZODONE [Concomitant]
  7. LEXAPRO [Concomitant]
  8. AZOR [Concomitant]
     Indication: BLOOD PRESSURE
     Dosage: 5MG/20MG
  9. CARVEDILOL [Concomitant]
     Indication: BLOOD PRESSURE
     Dosage: 3.125 MG, 2X/DAY
  10. PRIMIDONE [Concomitant]

REACTIONS (5)
  - AGEUSIA [None]
  - CEREBROVASCULAR ACCIDENT [None]
  - DEHYDRATION [None]
  - FATIGUE [None]
  - HYPERTENSION [None]
